FAERS Safety Report 4565184-3 (Version None)
Quarter: 2005Q1

REPORT INFORMATION
  Report Type: 
  Country: None (occurrence: None)
  Receive Date: 20050127
  Receipt Date: 20050127
  Transmission Date: 20050727
  Serious: Yes (Hospitalization)
  Sender: FDA-Public Use
  Company Number: None

PATIENT
  Age: 27 Year
  Sex: Male
  Weight: 70 kg

DRUGS (4)
  1. KETOROLAC  IM-DOSE UNKNOW. [Suspect]
     Indication: FOOT FRACTURE
     Dosage: DOSE UNKNOWN IM X 1 - OUTPATIENT
     Route: 030
     Dates: start: 20050113
  2. KETOROLAC  IM-DOSE UNKNOW. [Suspect]
     Indication: PAIN
     Dosage: DOSE UNKNOWN IM X 1 - OUTPATIENT
     Route: 030
     Dates: start: 20050113
  3. REGULAR INSULIN [Concomitant]
  4. GABAPENTIN [Concomitant]

REACTIONS (7)
  - CEREBROVASCULAR ACCIDENT [None]
  - DYSARTHRIA [None]
  - FACIAL PAIN [None]
  - HEADACHE [None]
  - PRURITUS GENERALISED [None]
  - RASH GENERALISED [None]
  - RASH PAPULAR [None]
